FAERS Safety Report 16680483 (Version 4)
Quarter: 2020Q2

REPORT INFORMATION
  Report Type: Report from Study
  Country: None (occurrence: ES)
  Receive Date: 20190807
  Receipt Date: 20200611
  Transmission Date: 20200713
  Serious: Yes (Hospitalization)
  Sender: FDA-Public Use
  Company Number: ES-ABBVIE-18S-144-2537638-00

PATIENT
  Age: 63 Year
  Sex: Male

DRUGS (2)
  1. DUODOPA [Suspect]
     Active Substance: CARBIDOPA\LEVODOPA
     Indication: PARKINSON^S DISEASE
     Route: 050
     Dates: start: 20151126
  2. DUODOPA [Suspect]
     Active Substance: CARBIDOPA\LEVODOPA
     Dosage: DOSE DECREASED
     Route: 050

REACTIONS (16)
  - Weight decreased [Unknown]
  - Stoma site pain [Not Recovered/Not Resolved]
  - Stoma site odour [Not Recovered/Not Resolved]
  - Scar [Unknown]
  - Stoma site discharge [Not Recovered/Not Resolved]
  - Stoma site infection [Not Recovered/Not Resolved]
  - Embedded device [Recovered/Resolved]
  - Abdominal hernia [Not Recovered/Not Resolved]
  - Tremor [Recovered/Resolved]
  - Discomfort [Recovering/Resolving]
  - Device kink [Not Recovered/Not Resolved]
  - Stoma site discharge [Recovered/Resolved]
  - Pain [Recovering/Resolving]
  - Stoma site inflammation [Not Recovered/Not Resolved]
  - Dyskinesia [Recovered/Resolved]
  - Device issue [Not Recovered/Not Resolved]

NARRATIVE: CASE EVENT DATE: 20181029
